FAERS Safety Report 9439367 (Version 1)
Quarter: 2013Q3

REPORT INFORMATION
  Report Type: Spontaneous
  Country: US (occurrence: US)
  Receive Date: 20130805
  Receipt Date: 20130805
  Transmission Date: 20140515
  Serious: No
  Sender: FDA-Public Use
  Company Number: US-009507513-1307USA007374

PATIENT
  Age: 28 Year
  Sex: Female

DRUGS (1)
  1. SAPHRIS [Suspect]
     Indication: MOOD SWINGS
     Dosage: 10

REACTIONS (3)
  - Drug dependence [Unknown]
  - Irritability [Unknown]
  - Drug dose omission [Unknown]
